FAERS Safety Report 16582315 (Version 2)
Quarter: 2019Q3

REPORT INFORMATION
  Report Type: Spontaneous
  Country: DE (occurrence: DE)
  Receive Date: 20190717
  Receipt Date: 20190820
  Transmission Date: 20191004
  Serious: Yes (Hospitalization)
  Sender: FDA-Public Use
  Company Number: DE-DEXPHARM-20190541

PATIENT
  Age: 91 Year
  Sex: Female

DRUGS (8)
  1. RAMIPRIL. [Concomitant]
     Active Substance: RAMIPRIL
     Dosage: 0.5 DF ONCE DAILY IN THE EVENING
  2. LEVOTHYROXINE SODIUM. [Concomitant]
     Active Substance: LEVOTHYROXINE SODIUM
     Dosage: ONCE DAILY IN THE MORNING
  3. UBRETID [Concomitant]
     Active Substance: DISTIGMINE BROMIDE
     Dosage: UNKNOWN DOSAGE ONCE DAILY IN THE MORNING
  4. TAMSULOSIN [Concomitant]
     Active Substance: TAMSULOSIN
     Dosage: 0.4 MG ONCE DAILY IN THE MORNING
  5. PANTOPRAZOL [Concomitant]
     Active Substance: PANTOPRAZOLE SODIUM
     Dosage: ONCE DAILY IN THE MORNING
  6. ASPIRIN. [Interacting]
     Active Substance: ASPIRIN
     Dosage: ONCE DAILY IN THE MIDDLE OF THE DAY
  7. DONEPEZIL NON DEXCEL PRODUCT [Suspect]
     Active Substance: DONEPEZIL
     Indication: PRODUCT USE IN UNAPPROVED INDICATION
     Dosage: ONCE DAILY IN THE EVENING
  8. LERCANIDIPINE [Concomitant]
     Active Substance: LERCANIDIPINE
     Dosage: TWICE DAILY - IN THE MORNING AND IN THE EVENING

REACTIONS (2)
  - Haematemesis [Unknown]
  - Drug interaction [Unknown]

NARRATIVE: CASE EVENT DATE: 20180108
